FAERS Safety Report 20345928 (Version 2)
Quarter: 2022Q1

REPORT INFORMATION
  Report Type: Spontaneous
  Country: US (occurrence: US)
  Receive Date: 20220118
  Receipt Date: 20220125
  Transmission Date: 20220423
  Serious: Yes (Other)
  Sender: FDA-Public Use
  Company Number: US-PFIZER INC-202200057022

PATIENT
  Age: 37 Year
  Sex: Female
  Weight: 67.13 kg

DRUGS (8)
  1. BUPIVACAINE HYDROCHLORIDE [Suspect]
     Active Substance: BUPIVACAINE HYDROCHLORIDE
     Indication: General anaesthesia
     Dosage: UNK
     Dates: start: 20220105
  2. BUPIVACAINE HYDROCHLORIDE [Suspect]
     Active Substance: BUPIVACAINE HYDROCHLORIDE
     Indication: Nerve injury
  3. LAMICTAL [Concomitant]
     Active Substance: LAMOTRIGINE
     Dosage: 200 MG
  4. SYNTHROID [Concomitant]
     Active Substance: LEVOTHYROXINE SODIUM
     Dosage: 75 UG
  5. LYRICA [Concomitant]
     Active Substance: PREGABALIN
     Indication: Nerve injury
     Dosage: 100 MG, 2X/DAY
  6. TRAMADOL [Concomitant]
     Active Substance: TRAMADOL
     Dosage: 50 MG, 3X/DAY
  7. VALIUM [Concomitant]
     Active Substance: DIAZEPAM
     Dosage: 5 MG, 4X/DAY (AS NEEDED)
  8. BOTOX [Concomitant]
     Active Substance: ONABOTULINUMTOXINA
     Dosage: UNK
     Dates: start: 202105

REACTIONS (15)
  - Loss of consciousness [Unknown]
  - Syncope [Unknown]
  - Pain [Unknown]
  - Chills [Unknown]
  - Hot flush [Unknown]
  - Delusional perception [Unknown]
  - Anxiety [Unknown]
  - Nervousness [Unknown]
  - Dizziness [Unknown]
  - Vision blurred [Unknown]
  - Palpitations [Unknown]
  - Dyspnoea [Unknown]
  - Chest pain [Unknown]
  - Feeling abnormal [Unknown]
  - Nausea [Unknown]

NARRATIVE: CASE EVENT DATE: 20220101
